FAERS Safety Report 9210680 (Version 1)
Quarter: 2013Q2

REPORT INFORMATION
  Report Type: Spontaneous
  Country: US (occurrence: US)
  Receive Date: 20130404
  Receipt Date: 20130404
  Transmission Date: 20140414
  Serious: No
  Sender: FDA-Public Use
  Company Number: US-PFIZER INC-2013104358

PATIENT
  Age: 57 Year
  Sex: Male
  Weight: 81.63 kg

DRUGS (3)
  1. ADVIL [Suspect]
     Indication: MYALGIA
     Dosage: 2 CAPSULES, DAILY
     Dates: start: 201303
  2. ADVIL [Suspect]
     Indication: ARTHRALGIA
  3. ZYRTEC [Concomitant]
     Indication: HYPERSENSITIVITY
     Dosage: UNK,AS NEEDED

REACTIONS (1)
  - Drug ineffective [Unknown]
